FAERS Safety Report 19783875 (Version 1)
Quarter: 2021Q3

REPORT INFORMATION
  Report Type: Spontaneous
  Country: JP (occurrence: JP)
  Receive Date: 20210903
  Receipt Date: 20210903
  Transmission Date: 20211014
  Serious: Yes (Death)
  Sender: FDA-Public Use
  Company Number: JP-ROCHE-2903382

PATIENT
  Age: 79 Year
  Sex: Male

DRUGS (3)
  1. TECENTRIQ [Suspect]
     Active Substance: ATEZOLIZUMAB
     Indication: SMALL CELL LUNG CANCER
     Dosage: 1200 MILLIGRAM, SINGLE
     Route: 041
     Dates: start: 202108, end: 202108
  2. ETOPOSIDE. [Concomitant]
     Active Substance: ETOPOSIDE
     Route: 041
  3. CARBOPLATIN. [Concomitant]
     Active Substance: CARBOPLATIN
     Route: 041

REACTIONS (1)
  - Melaena [Fatal]

NARRATIVE: CASE EVENT DATE: 202108
